FAERS Safety Report 12299749 (Version 1)
Quarter: 2016Q2

REPORT INFORMATION
  Report Type: Report from Study
  Country: BR (occurrence: BR)
  Receive Date: 20160425
  Receipt Date: 20160425
  Transmission Date: 20160815
  Serious: Yes (Hospitalization, Other)
  Sender: FDA-Public Use
  Company Number: PHHY2016BR054708

PATIENT
  Sex: Male
  Weight: 81 kg

DRUGS (1)
  1. SANDOSTATIN LAR DEPOT [Suspect]
     Active Substance: OCTREOTIDE ACETATE
     Indication: NEUROENDOCRINE TUMOUR
     Dosage: 30 MG, UNK
     Route: 065
     Dates: start: 201408

REACTIONS (4)
  - Pericarditis [Recovered/Resolved]
  - Pain in extremity [Unknown]
  - Dyspnoea [Unknown]
  - Chest pain [Unknown]
